FAERS Safety Report 26039930 (Version 1)
Quarter: 2025Q4

REPORT INFORMATION
  Report Type: Spontaneous
  Country: EU (occurrence: EU)
  Receive Date: 20251113
  Receipt Date: 20251113
  Transmission Date: 20260117
  Serious: Yes (Other)
  Sender: SANDOZ
  Company Number: None

PATIENT
  Age: 28 Year
  Sex: Male

DRUGS (1)
  1. TYRUKO [Suspect]
     Active Substance: NATALIZUMAB-SZTN
     Indication: Relapsing-remitting multiple sclerosis
     Dosage: 300 MG EVERY 42?45 DAYS  (EXTENDED INTERVAL DOSING PROTOCOL).
     Route: 042
     Dates: start: 20240821, end: 20250507

REACTIONS (2)
  - Multiple sclerosis [Recovered/Resolved]
  - Product substitution issue [Recovered/Resolved]

NARRATIVE: CASE EVENT DATE: 20240821
